FAERS Safety Report 9125924 (Version 1)
Quarter: 2013Q1

REPORT INFORMATION
  Report Type: Report from Study
  Country: US (occurrence: US)
  Receive Date: 20130117
  Receipt Date: 20130117
  Transmission Date: 20140127
  Serious: Yes (Other)
  Sender: FDA-Public Use
  Company Number: US-ABBOTT-12P-163-0945523-00

PATIENT
  Age: 27 Year
  Sex: Male

DRUGS (10)
  1. HUMIRA 40 MG/ 0.8 ML PRE-FILLED SYRINGE [Suspect]
     Indication: CROHN^S DISEASE
     Dates: start: 201004
  2. PENTASA [Concomitant]
     Indication: PRODUCT USED FOR UNKNOWN INDICATION
     Dosage: PILLS
  3. OMEPRAZOLE [Concomitant]
     Indication: GASTROOESOPHAGEAL REFLUX DISEASE
     Dosage: 1-2 TIMES A WEEK AS NEEDED
     Route: 048
  4. PROBIOTIC [Concomitant]
     Indication: PRODUCT USED FOR UNKNOWN INDICATION
     Dosage: OCCASIONALLY
     Route: 048
  5. MULTIVITAMIN [Concomitant]
     Indication: SUPPLEMENTATION THERAPY
  6. VIT B COMPLEX [Concomitant]
     Indication: SUPPLEMENTATION THERAPY
  7. FOLIC ACID [Concomitant]
     Indication: SUPPLEMENTATION THERAPY
  8. CITRICAL [Concomitant]
     Indication: PRODUCT USED FOR UNKNOWN INDICATION
  9. CANASA [Concomitant]
     Indication: CROHN^S DISEASE
     Dosage: AT BEDTIME
  10. VITAMIN C [Concomitant]

REACTIONS (9)
  - Neoplasm malignant [Unknown]
  - Dysplasia [Unknown]
  - Increased tendency to bruise [Unknown]
  - Petechiae [Unknown]
  - Arthritis [Unknown]
  - Influenza [Recovered/Resolved]
  - Oedema peripheral [Recovered/Resolved]
  - Lymphocyte morphology abnormal [Unknown]
  - Tendonitis [Unknown]
